FAERS Safety Report 11358668 (Version 1)
Quarter: 2015Q3

REPORT INFORMATION
  Report Type: Spontaneous
  Country: US (occurrence: US)
  Receive Date: 20150803
  Receipt Date: 20150803
  Transmission Date: 20151125
  Serious: No
  Sender: FDA-Public Use
  Company Number: US-ELI_LILLY_AND_COMPANY-US200904000152

PATIENT
  Sex: Male

DRUGS (1)
  1. ZYPREXA [Suspect]
     Active Substance: OLANZAPINE
     Dosage: 10 MG, 3/D

REACTIONS (6)
  - Prescribed overdose [Unknown]
  - Vision blurred [Unknown]
  - Adverse drug reaction [Unknown]
  - Tremor [Unknown]
  - Aura [Unknown]
  - Muscular weakness [Unknown]
